FAERS Safety Report 5419244-5 (Version None)
Quarter: 2007Q3

REPORT INFORMATION
  Report Type: 
  Country: None (occurrence: None)
  Receive Date: 20070815
  Receipt Date: 20070808
  Transmission Date: 20080115
  Serious: Yes (Hospitalization)
  Sender: FDA-Public Use
  Company Number: 2007SP015953

PATIENT
  Age: 75 Year
  Sex: Male
  Weight: 73.63 kg

DRUGS (21)
  1. TEMOZOLOMIDE [Suspect]
     Indication: GLIOBLASTOMA MULTIFORME
     Dosage: 75 MG/M2; ; PO
     Route: 048
     Dates: start: 20070717, end: 20070802
  2. TEMOZOLOMIDE [Suspect]
     Indication: GLIOBLASTOMA MULTIFORME
     Dosage: 75 MG/M2; ; PO
     Route: 048
     Dates: start: 20070806
  3. TEMOZOLOMIDE [Suspect]
  4. COLACE [Concomitant]
  5. TOBRADEX [Concomitant]
  6. KEPPRA [Concomitant]
  7. GLYBURIDE [Concomitant]
  8. DICLUCAN [Concomitant]
  9. MYCOSTATIN /00036501/ [Concomitant]
  10. LISINOPRIL [Concomitant]
  11. METOPROLOL SUCCINATE [Concomitant]
  12. PANTOPRAZOLE SODIUM [Concomitant]
  13. RISPERIDONE [Concomitant]
  14. BUMEX [Concomitant]
  15. POTASSIUM CHLORIDE [Concomitant]
  16. IMDUR [Concomitant]
  17. DECADRON [Concomitant]
  18. HUMULIN /00646001/ [Concomitant]
  19. BACTRIM DS [Concomitant]
  20. ZOFRAN [Concomitant]
  21. LACTULOSE [Concomitant]

REACTIONS (2)
  - BLOOD PRESSURE INCREASED [None]
  - ILEUS [None]
